FAERS Safety Report 4595364-2 (Version None)
Quarter: 2005Q1

REPORT INFORMATION
  Report Type: 
  Country: None (occurrence: None)
  Receive Date: 20050223
  Receipt Date: 20050209
  Transmission Date: 20050727
  Serious: Yes (Hospitalization)
  Sender: FDA-Public Use
  Company Number: SP-2005-002036

PATIENT
  Age: 58 Year
  Sex: Female

DRUGS (3)
  1. OLMETEC [Suspect]
     Indication: HYPERTENSION
     Dosage: 20 MG QD PO
     Route: 048
     Dates: start: 20041215, end: 20041222
  2. PHYSIOTENS   GIULINI [Concomitant]
  3. NITROGLYCERIN [Concomitant]

REACTIONS (1)
  - CARDIAC FAILURE ACUTE [None]
